FAERS Safety Report 6812849-6 (Version None)
Quarter: 2010Q3

REPORT INFORMATION
  Report Type: 
  Country: None (occurrence: None)
  Receive Date: 20100701
  Receipt Date: 20100628
  Transmission Date: 20110219
  Serious: Yes (Hospitalization)
  Sender: FDA-Public Use
  Company Number: US-CEPHALON-2010003477

PATIENT
  Sex: Male
  Weight: 79 kg

DRUGS (6)
  1. TREANDA [Suspect]
     Indication: B-CELL LYMPHOMA
     Route: 042
     Dates: start: 20100419, end: 20100615
  2. RITUXAN [Suspect]
     Indication: B-CELL LYMPHOMA
     Route: 042
     Dates: start: 20100419, end: 20100614
  3. AMLODIPINE [Concomitant]
     Indication: HYPERTENSION
     Dates: start: 20000101
  4. LISINOPRIL [Concomitant]
     Indication: HYPERTENSION
     Dates: start: 20100412
  5. LISINOPRIL [Concomitant]
  6. HEPSERA [Concomitant]
     Indication: HEPATITIS B
     Dates: start: 20000101

REACTIONS (2)
  - FEBRILE NEUTROPENIA [None]
  - ORAL HERPES [None]
